FAERS Safety Report 14961968 (Version 4)
Quarter: 2018Q4

REPORT INFORMATION
  Report Type: Spontaneous
  Country: CO (occurrence: CO)
  Receive Date: 20180601
  Receipt Date: 20181016
  Transmission Date: 20190204
  Serious: Yes (Hospitalization)
  Sender: FDA-Public Use
  Company Number: CO-AMGEN-COLSP2018073692

PATIENT
  Age: 49 Year
  Sex: Male

DRUGS (1)
  1. ENBREL [Suspect]
     Active Substance: ETANERCEPT
     Indication: RHEUMATOID ARTHRITIS
     Dosage: 50 MG, WEEKLY
     Route: 058
     Dates: start: 2016

REACTIONS (9)
  - Decreased immune responsiveness [Unknown]
  - Arthralgia [Not Recovered/Not Resolved]
  - Renal abscess [Unknown]
  - Joint swelling [Not Recovered/Not Resolved]
  - Erythema [Not Recovered/Not Resolved]
  - Chills [Unknown]
  - Urinary tract infection [Not Recovered/Not Resolved]
  - Loss of consciousness [Unknown]
  - Bacteraemia [Recovered/Resolved]
